FAERS Safety Report 8982795 (Version 1)
Quarter: 2012Q4

REPORT INFORMATION
  Report Type: Report from Study
  Country: CA (occurrence: CA)
  Receive Date: 20121224
  Receipt Date: 20121224
  Transmission Date: 20130627
  Serious: Yes (Other)
  Sender: FDA-Public Use
  Company Number: CA-JNJFOC-20121206997

PATIENT
  Age: 47 Year
  Sex: Female
  Weight: 130 kg

DRUGS (7)
  1. REMICADE [Suspect]
     Indication: CROHN^S DISEASE
     Route: 042
     Dates: start: 20061124
  2. IMURAN [Concomitant]
     Route: 066
  3. PANTOLOC [Concomitant]
     Route: 065
  4. MACROBID (NITROFURANTOIN) [Concomitant]
     Route: 065
  5. QUESTRAN [Concomitant]
     Route: 065
  6. MAXERAN [Concomitant]
     Route: 065
  7. DICETEL [Concomitant]
     Route: 065

REACTIONS (2)
  - Migraine [Recovered/Resolved]
  - Lower respiratory tract infection [Recovered/Resolved]
